FAERS Safety Report 9830424 (Version 2)
Quarter: 2014Q1

REPORT INFORMATION
  Report Type: Spontaneous
  Country: DO (occurrence: DO)
  Receive Date: 20140120
  Receipt Date: 20140306
  Transmission Date: 20141002
  Serious: Yes (Death, Hospitalization, Other)
  Sender: FDA-Public Use
  Company Number: DO-JNJFOC-20140105339

PATIENT
  Age: 71 Year
  Sex: Male

DRUGS (5)
  1. XARELTO [Suspect]
     Indication: CEREBROVASCULAR ACCIDENT PROPHYLAXIS
     Route: 048
     Dates: start: 201308
  2. XARELTO [Suspect]
     Indication: ATRIAL FIBRILLATION
     Route: 048
     Dates: start: 201308
  3. COAPROVEL [Concomitant]
     Indication: HYPERTENSION
     Route: 065
  4. ACETAMINOPHEN [Concomitant]
     Dosage: 1500-2000 MG /DAY (4-5 TABLETS), 15 DAYS PRIOR TO EVENT
     Route: 048
  5. VITAMIN C [Concomitant]
     Route: 065

REACTIONS (6)
  - Acute abdomen [Unknown]
  - Hepatic steatosis [Unknown]
  - Hepatic necrosis [Fatal]
  - Hepatic haemorrhage [Fatal]
  - Haematuria [Unknown]
  - Renal cyst [Unknown]
